FAERS Safety Report 5127491-5 (Version None)
Quarter: 2006Q4

REPORT INFORMATION
  Report Type: 
  Country: None (occurrence: None)
  Receive Date: 20061011
  Receipt Date: 20060927
  Transmission Date: 20070319
  Serious: Yes (Other)
  Sender: FDA-Public Use
  Company Number: 2006JP003191

PATIENT
  Age: 54 Year
  Sex: Male
  Weight: 50 kg

DRUGS (11)
  1. FUNGUARD [Suspect]
     Indication: FUNGAL INFECTION
     Dosage: 150 MG, UNKNOWN/D, IV DRIP
     Route: 041
     Dates: start: 20060612, end: 20060626
  2. DIFLUCAN (FLUCONAZOLE) CAPSULE [Concomitant]
  3. MAXIPIME [Concomitant]
  4. VANCOMYCIN (VANCOMYCIN HYDROCHLORIDE) INJECTION [Concomitant]
  5. CIPROXAN (CIPROFLOXACIN HYDROCHLORIDE) TABLET [Concomitant]
  6. DECADRON [Concomitant]
  7. ONCOVIN (VINCRISTINE SULFATE) INJECTION [Concomitant]
  8. PREDONINE (PRENISOLONE SODIUM SUCCINATE) INJECTION [Concomitant]
  9. POLYGLOBIN (IMMUNOGLOBULIN HUMAN NORMAL) INJECTION [Concomitant]
  10. NEUPOGEN [Concomitant]
  11. FOY (GABEXATE MESILATE) INJECTION [Concomitant]

REACTIONS (3)
  - CONDITION AGGRAVATED [None]
  - DISSEMINATED INTRAVASCULAR COAGULATION [None]
  - INFECTION [None]
